FAERS Safety Report 14887267 (Version 2)
Quarter: 2018Q2

REPORT INFORMATION
  Report Type: Spontaneous
  Country: US (occurrence: US)
  Receive Date: 20180513
  Receipt Date: 20180516
  Transmission Date: 20180711
  Serious: No
  Sender: FDA-Public Use
  Company Number: US-JNJFOC-20180419543

PATIENT
  Age: 31 Year
  Sex: Male
  Weight: 63.5 kg

DRUGS (2)
  1. MENS ROGAINE EXTRA STRENGTH [Suspect]
     Active Substance: MINOXIDIL
     Route: 061
  2. MENS ROGAINE EXTRA STRENGTH [Suspect]
     Active Substance: MINOXIDIL
     Indication: ALOPECIA
     Dosage: USED ONLY 1 1/2 BOTTLES IN THE 3 1/2 MONTH TIMEHAS BEEN USING LITTLE OVER 3 MONTHS
     Route: 061
     Dates: start: 20171221, end: 20180413

REACTIONS (8)
  - Alopecia [Not Recovered/Not Resolved]
  - Product administered at inappropriate site [Unknown]
  - Inappropriate schedule of drug administration [Unknown]
  - Hot flush [Not Recovered/Not Resolved]
  - Dyspnoea [Not Recovered/Not Resolved]
  - Heart rate increased [Not Recovered/Not Resolved]
  - Middle insomnia [Not Recovered/Not Resolved]
  - Chest pain [Not Recovered/Not Resolved]
